FAERS Safety Report 20448946 (Version 11)
Quarter: 2025Q2

REPORT INFORMATION
  Report Type: Spontaneous
  Country: CA (occurrence: CA)
  Receive Date: 20220209
  Receipt Date: 20250605
  Transmission Date: 20250716
  Serious: Yes (Hospitalization, Other)
  Sender: MYLAN
  Company Number: CA-PFIZER INC-2021056591

PATIENT
  Age: 68 Year
  Sex: Female
  Weight: 77.46 kg

DRUGS (18)
  1. REVATIO [Suspect]
     Active Substance: SILDENAFIL CITRATE
     Indication: Pulmonary arterial hypertension
     Dosage: 20 MILLIGRAM, TID (20 MG,3X/DAY)
     Dates: start: 20200731
  2. CRESTOR [Concomitant]
     Active Substance: ROSUVASTATIN CALCIUM
  3. FUROSEMIDE [Concomitant]
     Active Substance: FUROSEMIDE
  4. GLICLAZIDE [Concomitant]
     Active Substance: GLICLAZIDE
  5. INSULIN NOS [Concomitant]
     Active Substance: INSULIN NOS
  6. JANUMET [Concomitant]
     Active Substance: METFORMIN HYDROCHLORIDE\SITAGLIPTIN PHOSPHATE
  7. METOPROLOL [Concomitant]
     Active Substance: METOPROLOL
  8. MACITENTAN [Concomitant]
     Active Substance: MACITENTAN
  9. OPSUMIT [Concomitant]
     Active Substance: MACITENTAN
  10. PANTOPRAZOLE MAGNESIUM [Concomitant]
     Active Substance: PANTOPRAZOLE MAGNESIUM
  11. TYLENOL [Concomitant]
     Active Substance: ACETAMINOPHEN
  12. TEMAZEPAM [Concomitant]
     Active Substance: TEMAZEPAM
  13. UPTRAVI [Concomitant]
     Active Substance: SELEXIPAG
     Dosage: 1000 MICROGRAM, BID (1000 UG, 2X/DAY)
  14. UPTRAVI [Concomitant]
     Active Substance: SELEXIPAG
     Dosage: 800 MICROGRAM, BID (800 UG, 2X/DAY)
     Dates: start: 20210407
  15. WARFARIN [Concomitant]
     Active Substance: WARFARIN
  16. Doxicycline [Concomitant]
  17. REMODULIN [Concomitant]
     Active Substance: TREPROSTINIL
  18. INSULIN NOS [Concomitant]
     Active Substance: INSULIN NOS

REACTIONS (30)
  - Fall [Unknown]
  - Hospitalisation [Unknown]
  - Craniofacial fracture [Recovered/Resolved]
  - Cardiac arrest [Unknown]
  - Chills [Recovering/Resolving]
  - Fluid retention [Unknown]
  - Cerebral haemorrhage [Recovered/Resolved]
  - Pyrexia [Recovering/Resolving]
  - Hip fracture [Unknown]
  - Hip arthroplasty [Unknown]
  - Fracture [Unknown]
  - Chest injury [Unknown]
  - Ligament sprain [Unknown]
  - Limb injury [Unknown]
  - Sinusitis [Not Recovered/Not Resolved]
  - Renal failure [Unknown]
  - Hip surgery [Unknown]
  - Sinus congestion [Not Recovered/Not Resolved]
  - Weight increased [Unknown]
  - Neck pain [Not Recovered/Not Resolved]
  - Pain in jaw [Not Recovered/Not Resolved]
  - Ear pain [Unknown]
  - Asthenia [Not Recovered/Not Resolved]
  - Malaise [Not Recovered/Not Resolved]
  - Hypotension [Recovered/Resolved]
  - Nausea [Not Recovered/Not Resolved]
  - Weight decreased [Unknown]
  - Headache [Not Recovered/Not Resolved]
  - Myalgia [Unknown]
  - Dizziness [Unknown]

NARRATIVE: CASE EVENT DATE: 20210118
